FAERS Safety Report 4324947-X (Version None)
Quarter: 2004Q1

REPORT INFORMATION
  Report Type: 
  Country: None (occurrence: None)
  Receive Date: 20040325
  Receipt Date: 20040325
  Transmission Date: 20041129
  Serious: Yes (Other)
  Sender: FDA-Public Use
  Company Number: None

PATIENT
  Age: 75 Year
  Sex: Female

DRUGS (9)
  1. DONEPEZIL HCL [Suspect]
     Indication: DEMENTIA
     Dosage: 10 MG QD PO
     Route: 048
     Dates: start: 20020919, end: 20030915
  2. LANSOPRAZOLE [Concomitant]
  3. FLUTILSONE NA [Concomitant]
  4. HYDROCHLOROTHIAZIDE [Concomitant]
  5. ATENOLOL [Concomitant]
  6. RANITIDITINE [Concomitant]
  7. DICLOXACILLIN [Concomitant]
  8. LEVOTHYROXME [Concomitant]
  9. ASPIRIN [Concomitant]

REACTIONS (1)
  - RHINORRHOEA [None]
